FAERS Safety Report 10089548 (Version 1)
Quarter: 2014Q2

REPORT INFORMATION
  Report Type: Spontaneous
  Country: ES (occurrence: ES)
  Receive Date: 20140421
  Receipt Date: 20140421
  Transmission Date: 20141212
  Serious: Yes (Hospitalization)
  Sender: FDA-Public Use
  Company Number: ES-SA-2014SA047981

PATIENT
  Age: 52 Year
  Sex: Female

DRUGS (10)
  1. DRONEDARONE [Suspect]
     Indication: ATRIAL FIBRILLATION
     Route: 065
     Dates: start: 201301
  2. DRONEDARONE [Interacting]
     Indication: ATRIAL FIBRILLATION
     Route: 065
     Dates: start: 2013
  3. TACROLIMUS [Interacting]
     Indication: IMMUNOSUPPRESSION
     Route: 065
  4. TACROLIMUS [Interacting]
     Indication: IMMUNOSUPPRESSION
     Route: 065
     Dates: start: 2013
  5. TACROLIMUS [Interacting]
     Indication: IMMUNOSUPPRESSION
     Route: 065
     Dates: start: 2013
  6. TACROLIMUS [Interacting]
     Indication: IMMUNOSUPPRESSION
     Route: 065
     Dates: start: 2013
  7. TACROLIMUS [Interacting]
     Indication: IMMUNOSUPPRESSION
     Route: 065
     Dates: start: 2013
  8. TACROLIMUS [Interacting]
     Indication: IMMUNOSUPPRESSION
     Route: 065
     Dates: start: 2013
  9. TACROLIMUS [Interacting]
     Indication: IMMUNOSUPPRESSION
     Route: 065
     Dates: start: 2013
  10. RIVAROXABAN [Concomitant]
     Indication: THROMBOSIS PROPHYLAXIS
     Dates: start: 2013

REACTIONS (8)
  - Renal impairment [Recovering/Resolving]
  - Drug interaction [Unknown]
  - Immunosuppressant drug level increased [Recovering/Resolving]
  - Blood creatinine increased [Recovering/Resolving]
  - Glomerular filtration rate decreased [Recovering/Resolving]
  - Fluid overload [Recovering/Resolving]
  - Fatigue [Unknown]
  - Oedema [Recovering/Resolving]
